FAERS Safety Report 8443666 (Version 5)
Quarter: 2012Q4

REPORT INFORMATION
  Report Type: Spontaneous
  Country: AT (occurrence: None)
  Receive Date: 20120223
  Receipt Date: 20121001
  Transmission Date: 20130627
  Serious: Yes (Hospitalization)
  Sender: FDA-Public Use
  Company Number: 2012-071

PATIENT
  Age: 29 Year
  Sex: Male
  Weight: 56 kg

DRUGS (13)
  1. PRIALT [Suspect]
     Indication: PAIN
     Route: 037
     Dates: start: 20070705
  2. PRIALT [Suspect]
     Indication: PAIN
     Dosage: SEE IMAGE
     Route: 037
     Dates: start: 20090917, end: 20100331
  3. PRIALT [Suspect]
     Indication: PAIN
     Dosage: SEE IMAGE
     Route: 037
     Dates: start: 20100331, end: 20100503
  4. PRIALT [Suspect]
     Indication: PAIN
     Dosage: SEE IMAGE
     Route: 037
     Dates: start: 20100503
  5. BACLOFEN [Suspect]
     Indication: PAIN
     Route: 037
     Dates: start: 20090917, end: 20100331
  6. BACLOFEN [Suspect]
     Indication: PAIN
     Route: 037
     Dates: start: 20100331, end: 20100503
  7. BACLOFEN [Suspect]
     Indication: PAIN
     Route: 037
     Dates: start: 20100503
  8. AMITRIPTYLINE HYDROCHLORIDE [Concomitant]
  9. BONIVA [Concomitant]
  10. GEWACALM (DIAZEPAM) [Concomitant]
  11. CYMBALTA [Concomitant]
  12. MIRTAZAPINE [Concomitant]
  13. SEROQUEL XR [Concomitant]

REACTIONS (5)
  - GENERAL PHYSICAL HEALTH DETERIORATION [None]
  - WEIGHT DECREASED [None]
  - GASTRITIS [None]
  - ABDOMINAL PAIN [None]
  - ALCOHOL ABUSE [None]
